FAERS Safety Report 23857617 (Version 1)
Quarter: 2024Q2

REPORT INFORMATION
  Report Type: Spontaneous
  Country: US (occurrence: None)
  Receive Date: 20240514
  Receipt Date: 20240514
  Transmission Date: 20240716
  Serious: Yes (Other)
  Sender: FDA-Public Use
  Company Number: None

PATIENT
  Age: 24 Year
  Sex: Female
  Weight: 63.5 kg

DRUGS (3)
  1. NEXPLANON [Suspect]
     Active Substance: ETONOGESTREL
  2. ALBUTEROL [Concomitant]
     Active Substance: ALBUTEROL
  3. FLONASE [Concomitant]
     Active Substance: FLUTICASONE PROPIONATE

REACTIONS (6)
  - Complication associated with device [None]
  - Heavy menstrual bleeding [None]
  - Polymenorrhoea [None]
  - Acne [None]
  - Hirsutism [None]
  - Alopecia [None]

NARRATIVE: CASE EVENT DATE: 20230514
